FAERS Safety Report 15187615 (Version 1)
Quarter: 2018Q3

REPORT INFORMATION
  Report Type: Spontaneous
  Country: FR (occurrence: FR)
  Receive Date: 20180723
  Receipt Date: 20180723
  Transmission Date: 20181010
  Serious: Yes (Other)
  Sender: FDA-Public Use
  Company Number: FR-ROCHE-2158623

PATIENT
  Age: 16 Year
  Sex: Male

DRUGS (2)
  1. MYCOPHENOLATE MOFETIL. [Suspect]
     Active Substance: MYCOPHENOLATE MOFETIL
     Indication: C3 GLOMERULOPATHY
     Route: 065
  2. TACROLIMUS. [Suspect]
     Active Substance: TACROLIMUS
     Indication: C3 GLOMERULOPATHY
     Route: 065

REACTIONS (4)
  - Product use in unapproved indication [Unknown]
  - C3 glomerulopathy [Unknown]
  - Condition aggravated [Unknown]
  - Off label use [Unknown]
